FAERS Safety Report 8507699-9 (Version None)
Quarter: 2012Q3

REPORT INFORMATION
  Report Type: 
  Country: None (occurrence: None)
  Receive Date: 20120713
  Receipt Date: 20120703
  Transmission Date: 20120928
  Serious: Yes (Other)
  Sender: FDA-Public Use
  Company Number: US-ELI_LILLY_AND_COMPANY-US201104000146

PATIENT
  Sex: Male
  Weight: 77.098 kg

DRUGS (4)
  1. HUMULIN N [Suspect]
     Indication: DIABETES MELLITUS
     Dosage: UNK UNK, PRN
     Dates: start: 20110601
  2. HUMULIN N [Suspect]
     Indication: TYPE 1 DIABETES MELLITUS
     Dosage: UNK
  3. HUMALOG [Suspect]
     Dosage: UNK
     Dates: start: 19490101
  4. HUMALOG [Suspect]
     Indication: TYPE 1 DIABETES MELLITUS
     Dosage: 23 U, QD
     Dates: start: 20110601

REACTIONS (7)
  - BLINDNESS [None]
  - MOBILITY DECREASED [None]
  - CORONARY ARTERY BYPASS [None]
  - CATARACT [None]
  - BLOOD GLUCOSE INCREASED [None]
  - ARTHRITIS [None]
  - RETINOPATHY [None]
